FAERS Safety Report 15200661 (Version 1)
Quarter: 2018Q3

REPORT INFORMATION
  Report Type: Spontaneous
  Country: GB (occurrence: GB)
  Receive Date: 20180726
  Receipt Date: 20180726
  Transmission Date: 20181010
  Serious: Yes (Hospitalization)
  Sender: FDA-Public Use
  Company Number: GB-TEVA-2018-GB-929300

PATIENT
  Age: 97 Year
  Sex: Female
  Weight: 75.9 kg

DRUGS (5)
  1. CLARITHROMYCIN. [Suspect]
     Active Substance: CLARITHROMYCIN
     Dosage: 2 DOSAGE FORMS DAILY;
     Route: 048
     Dates: start: 20180527, end: 20180603
  2. LEVOTHYROXINE. [Concomitant]
     Active Substance: LEVOTHYROXINE
  3. CODEINE [Concomitant]
     Active Substance: CODEINE
  4. PARACETAMOL [Concomitant]
     Active Substance: ACETAMINOPHEN
  5. DIPYRIDAMOLE. [Concomitant]
     Active Substance: DIPYRIDAMOLE

REACTIONS (5)
  - Delirium [Recovered/Resolved]
  - Dysarthria [Recovered/Resolved]
  - Aggression [Unknown]
  - Hallucination [Unknown]
  - Confusional state [Recovered/Resolved]

NARRATIVE: CASE EVENT DATE: 20180527
